FAERS Safety Report 10028335 (Version 1)
Quarter: 2014Q1

REPORT INFORMATION
  Report Type: Spontaneous
  Country: US (occurrence: US)
  Receive Date: 20140321
  Receipt Date: 20140321
  Transmission Date: 20141002
  Serious: Yes (Hospitalization)
  Sender: FDA-Public Use
  Company Number: PHEH2014US005551

PATIENT
  Sex: Male

DRUGS (1)
  1. FOCALIN [Suspect]
     Dosage: 15 MG, DAILY

REACTIONS (2)
  - Cardiac arrest [Unknown]
  - Ventricular fibrillation [Unknown]
